FAERS Safety Report 12781079 (Version 1)
Quarter: 2016Q3

REPORT INFORMATION
  Report Type: Report from Study
  Country: CN (occurrence: CN)
  Receive Date: 20160926
  Receipt Date: 20160926
  Transmission Date: 20161109
  Serious: Yes (Hospitalization)
  Sender: FDA-Public Use
  Company Number: CN-ELI_LILLY_AND_COMPANY-CN201609005013

PATIENT
  Age: 75 Year
  Sex: Female
  Weight: 90 kg

DRUGS (6)
  1. INSULIN, LISPRO [Suspect]
     Active Substance: INSULIN LISPRO
     Dosage: 30 U, EACH MORNING
     Route: 058
  2. INSULIN, LISPRO [Suspect]
     Active Substance: INSULIN LISPRO
     Dosage: 15 U, EACH EVENING
     Route: 058
     Dates: end: 201607
  3. ACARBOSE. [Concomitant]
     Active Substance: ACARBOSE
     Dosage: UNK, TID
     Route: 065
  4. INSULIN, LISPRO [Suspect]
     Active Substance: INSULIN LISPRO
     Dosage: 20 U, EACH MORNING
     Route: 058
     Dates: end: 201607
  5. XIAO KE [Concomitant]
  6. INSULIN, LISPRO [Suspect]
     Active Substance: INSULIN LISPRO
     Indication: DIABETES MELLITUS
     Dosage: 20 U, EACH MORNING
     Route: 058

REACTIONS (5)
  - Drug dose omission [Unknown]
  - Hypoaesthesia [Unknown]
  - Hypoglycaemic unconsciousness [Unknown]
  - Asthenia [Unknown]
  - Weight loss poor [Unknown]

NARRATIVE: CASE EVENT DATE: 201604
